FAERS Safety Report 4269023-X (Version None)
Quarter: 2004Q1

REPORT INFORMATION
  Report Type: 
  Country: None (occurrence: None)
  Receive Date: 20040112
  Receipt Date: 20040112
  Transmission Date: 20041129
  Serious: Yes (Other)
  Sender: FDA-Public Use
  Company Number: None

PATIENT
  Age: 81 Year
  Sex: Female
  Weight: 71.6683 kg

DRUGS (2)
  1. BEXTRA [Suspect]
     Indication: OSTEOARTHRITIS
     Dosage: 20MG QD ORAL
     Route: 048
     Dates: start: 20031215, end: 20040104
  2. BEXTRA [Suspect]
     Indication: OSTEOARTHRITIS
     Dosage: 20MG QD ORAL
     Route: 048
     Dates: start: 20031215, end: 20040104

REACTIONS (1)
  - RASH [None]
